FAERS Safety Report 6803238-9 (Version None)
Quarter: 2010Q2

REPORT INFORMATION
  Report Type: 
  Country: None (occurrence: None)
  Receive Date: 20100628
  Receipt Date: 20100617
  Transmission Date: 20101027
  Serious: Yes (Death, Hospitalization)
  Sender: FDA-Public Use
  Company Number: B0662486A

PATIENT
  Age: 66 Year
  Sex: Male

DRUGS (1)
  1. AMOXICILLIN AND CLAVULANATE POTASSIUM [Suspect]
     Indication: ACUTE TONSILLITIS
     Dosage: 625MG PER DAY
     Route: 048

REACTIONS (7)
  - FATIGUE [None]
  - HAEMOLYTIC ANAEMIA [None]
  - HEPATIC FUNCTION ABNORMAL [None]
  - HEPATOMEGALY [None]
  - JAUNDICE [None]
  - THROMBOTIC THROMBOCYTOPENIC PURPURA [None]
  - YELLOW SKIN [None]
